FAERS Safety Report 4781296-3 (Version None)
Quarter: 2005Q3

REPORT INFORMATION
  Report Type: 
  Country: None (occurrence: None)
  Receive Date: 20050914
  Receipt Date: 20050411
  Transmission Date: 20060218
  Serious: Yes (Other)
  Sender: FDA-Public Use
  Company Number: 163-20785-05040310

PATIENT
  Age: 62 Year
  Sex: Male

DRUGS (1)
  1. THALOMID [Suspect]
     Indication: PSORIASIS
     Dosage: 50MG UP TO 300MG DAILY OR MAXIUM TOLERATED DOSE, ORAL
     Route: 048
     Dates: start: 20050101

REACTIONS (1)
  - RADICULOPATHY [None]
